FAERS Safety Report 20486799 (Version 3)
Quarter: 2022Q3

REPORT INFORMATION
  Report Type: Report from Study
  Country: US (occurrence: US)
  Receive Date: 20220217
  Receipt Date: 20220712
  Transmission Date: 20221027
  Serious: No
  Sender: FDA-Public Use
  Company Number: US-BIOGEN-2022BI01096581

PATIENT
  Sex: Female

DRUGS (2)
  1. TYSABRI [Suspect]
     Active Substance: NATALIZUMAB
     Indication: Multiple sclerosis
     Route: 050
     Dates: start: 20130510, end: 20130808
  2. TYSABRI [Suspect]
     Active Substance: NATALIZUMAB
     Dosage: FREQUENCY 36-42 DAYS
     Route: 050
     Dates: start: 20161103

REACTIONS (7)
  - Relapsing multiple sclerosis [Unknown]
  - Migraine [Unknown]
  - Balance disorder [Recovered/Resolved]
  - Gait disturbance [Unknown]
  - Bell^s palsy [Unknown]
  - Herpes zoster [Unknown]
  - Prescribed underdose [Unknown]
